FAERS Safety Report 22066793 (Version 1)
Quarter: 2023Q1

REPORT INFORMATION
  Report Type: Spontaneous
  Country: US (occurrence: US)
  Receive Date: 20230306
  Receipt Date: 20230306
  Transmission Date: 20230418
  Serious: No
  Sender: FDA-Public Use
  Company Number: US-SA-SAC20230302000999

PATIENT
  Sex: Male

DRUGS (1)
  1. DUPIXENT [Suspect]
     Active Substance: DUPILUMAB
     Dosage: 300 MG, OTHER
     Route: 058

REACTIONS (6)
  - Acne [Unknown]
  - Erythema [Unknown]
  - Dry eye [Unknown]
  - Conjunctivitis [Unknown]
  - Rash pruritic [Unknown]
  - Inappropriate schedule of product administration [Unknown]
